FAERS Safety Report 21206732 (Version 1)
Quarter: 2022Q3

REPORT INFORMATION
  Report Type: Spontaneous
  Country: CN (occurrence: CN)
  Receive Date: 20220812
  Receipt Date: 20220812
  Transmission Date: 20221027
  Serious: Yes (Life-Threatening)
  Sender: FDA-Public Use
  Company Number: CN-BAYER-2022A112769

PATIENT
  Age: 82 Year
  Sex: Male
  Weight: 55 kg

DRUGS (1)
  1. ULTRAVIST [Suspect]
     Active Substance: IOPROMIDE
     Indication: Angiogram
     Dosage: 75 MG, ONCE
     Route: 042
     Dates: start: 20220810, end: 20220810

REACTIONS (3)
  - Loss of consciousness [Recovering/Resolving]
  - Rash papular [Recovering/Resolving]
  - Blood pressure systolic decreased [None]

NARRATIVE: CASE EVENT DATE: 20220810
